FAERS Safety Report 26000459 (Version 1)
Quarter: 2025Q4

REPORT INFORMATION
  Report Type: Spontaneous
  Country: US (occurrence: US)
  Receive Date: 20251105
  Receipt Date: 20251105
  Transmission Date: 20260117
  Serious: No
  Sender: ANI
  Company Number: US-ANIPHARMA-2025-US-039729

PATIENT
  Sex: Female

DRUGS (2)
  1. CORTICOTROPIN [Suspect]
     Active Substance: CORTICOTROPIN
     Indication: Polymyositis
     Dosage: 1ML TWICE WEEKLY
     Route: 058
     Dates: start: 202410
  2. PROLIA [Suspect]
     Active Substance: DENOSUMAB

REACTIONS (1)
  - Alopecia [Not Recovered/Not Resolved]
